FAERS Safety Report 10982673 (Version 1)
Quarter: 2015Q1

REPORT INFORMATION
  Report Type: Spontaneous
  Country: US (occurrence: None)
  Receive Date: 20150302
  Receipt Date: 20150302
  Transmission Date: 20150721
  Serious: Yes (Other)
  Sender: FDA-Public Use
  Company Number: M2014-009A

PATIENT
  Age: 22 Year
  Sex: Male

DRUGS (5)
  1. NORMAL SALINE, HOLLISTERSTIER [Suspect]
     Active Substance: SODIUM CHLORIDE
     Indication: SKIN PAPILLOMA
     Dosage: 0.4CC/INJECTION
     Dates: start: 20140707, end: 20140729
  2. CANDIDA ALBICANS. [Suspect]
     Active Substance: CANDIDA ALBICANS
     Indication: OFF LABEL USE
     Dosage: 0.4CC/INJECTION
     Dates: start: 20140707
  3. CANDIDA ALBICANS. [Suspect]
     Active Substance: CANDIDA ALBICANS
     Indication: SKIN PAPILLOMA
     Dosage: 0.4CC/INJECTION
     Dates: start: 20140707
  4. NORMAL SALINE, HOLLISTERSTIER [Suspect]
     Active Substance: SODIUM CHLORIDE
     Indication: OFF LABEL USE
     Dosage: 0.4CC/INJECTION
     Dates: start: 20140707, end: 20140729
  5. PREDNISONE. [Concomitant]
     Active Substance: PREDNISONE

REACTIONS (5)
  - Headache [None]
  - Malaise [None]
  - Yellow skin [None]
  - Influenza like illness [None]
  - Vomiting [None]

NARRATIVE: CASE EVENT DATE: 20140729
